FAERS Safety Report 5525582-8 (Version None)
Quarter: 2007Q4

REPORT INFORMATION
  Report Type: 
  Country: None (occurrence: None)
  Receive Date: 20071126
  Receipt Date: 20071115
  Transmission Date: 20080405
  Serious: Yes (Other)
  Sender: FDA-Public Use
  Company Number: B0496718A

PATIENT
  Age: 37 Year
  Sex: Male
  Weight: 76 kg

DRUGS (1)
  1. ZYBAN [Suspect]
     Indication: EX-SMOKER
     Route: 048
     Dates: start: 20070905, end: 20070917

REACTIONS (2)
  - PSORIASIS [None]
  - SKIN EXFOLIATION [None]
